FAERS Safety Report 9714154 (Version 1)
Quarter: 2013Q4

REPORT INFORMATION
  Report Type: Spontaneous
  Country: US (occurrence: US)
  Receive Date: 20131126
  Receipt Date: 20131126
  Transmission Date: 20140711
  Serious: No
  Sender: FDA-Public Use
  Company Number: US-GILEAD-2008-0019071

PATIENT
  Sex: Female
  Weight: 79.38 kg

DRUGS (13)
  1. LETAIRIS [Suspect]
     Indication: COR PULMONALE CHRONIC
     Route: 048
     Dates: start: 20081031
  2. NORVASC [Concomitant]
  3. TOPROL XL [Concomitant]
  4. ISOSORBIDE MN [Concomitant]
  5. COUMADIN [Concomitant]
  6. ASPIRIN EC [Concomitant]
  7. PLAVIX [Concomitant]
  8. VYTORIN [Concomitant]
  9. GLIPIZIDE [Concomitant]
  10. METFORMIN [Concomitant]
  11. ACTOS [Concomitant]
  12. LASIX [Concomitant]
  13. POTASSIUM CHLORIDE [Concomitant]

REACTIONS (1)
  - Oedema peripheral [None]
